FAERS Safety Report 8919262 (Version 1)
Quarter: 2012Q4

REPORT INFORMATION
  Report Type: 
  Country: US (occurrence: US)
  Receive Date: 20121121
  Receipt Date: 20121121
  Transmission Date: 20130627
  Serious: Yes (Other)
  Sender: FDA-Public Use
  Company Number: US-PFIZER INC-2012287296

PATIENT
  Age: 73 Year
  Sex: Female
  Weight: 81.18 kg

DRUGS (5)
  1. TOVIAZ [Suspect]
     Indication: URINARY FREQUENCY
     Dosage: 4 mg, 1x/day
     Route: 048
     Dates: start: 20121111, end: 20121114
  2. TOVIAZ [Suspect]
     Indication: NOCTURIA
  3. TOVIAZ [Suspect]
     Indication: URINARY FREQUENCY
  4. CARVEDILOL [Concomitant]
     Dosage: 6.25 mg, UNK
  5. CRESTOR [Concomitant]
     Dosage: 10 mg, UNK

REACTIONS (2)
  - Oedema peripheral [Unknown]
  - Eye disorder [Unknown]
